FAERS Safety Report 22537153 (Version 1)
Quarter: 2023Q2

REPORT INFORMATION
  Report Type: Spontaneous
  Country: AU (occurrence: None)
  Receive Date: 20230608
  Receipt Date: 20230608
  Transmission Date: 20230721
  Serious: Yes (Other)
  Sender: FDA-Public Use
  Company Number: 2023A126049

PATIENT
  Age: 51 Year
  Sex: Female

DRUGS (6)
  1. OSIMERTINIB [Suspect]
     Active Substance: OSIMERTINIB
  2. PACLITAXEL [Suspect]
     Active Substance: PACLITAXEL
  3. BEVACIZUMAB [Suspect]
     Active Substance: BEVACIZUMAB
  4. ATEZOLIZUMAB [Suspect]
     Active Substance: ATEZOLIZUMAB
  5. CARBOPLATIN [Suspect]
     Active Substance: CARBOPLATIN
  6. ERLOTINIB [Suspect]
     Active Substance: ERLOTINIB

REACTIONS (5)
  - Lung neoplasm malignant [Unknown]
  - Malignant neoplasm progression [Unknown]
  - Metastases to central nervous system [Unknown]
  - Metastases to liver [Unknown]
  - Dyspnoea [Unknown]
